FAERS Safety Report 4872277-X (Version None)
Quarter: 2005Q4

REPORT INFORMATION
  Report Type: 
  Country: None (occurrence: None)
  Receive Date: 20051201
  Receipt Date: 20050801
  Transmission Date: 20060501
  Serious: No
  Sender: FDA-Public Use
  Company Number: 2005PV000786

PATIENT
  Age: 61 Year
  Sex: Female
  Weight: 113.3993 kg

DRUGS (10)
  1. BYETTA [Suspect]
     Indication: DIABETES MELLITUS NON-INSULIN-DEPENDENT
     Dosage: 5 MCG;BID;SC
     Route: 058
     Dates: start: 20050701
  2. ACTOS [Concomitant]
  3. CYMBALTA [Concomitant]
  4. CLONIDINE [Concomitant]
  5. WELLBUTRIN [Concomitant]
  6. FOLBEE [Concomitant]
  7. NEXIUM [Concomitant]
  8. NEURONTIN [Concomitant]
  9. TOPAMAX [Concomitant]
  10. LOVASTATIN [Concomitant]

REACTIONS (3)
  - BLOOD GLUCOSE INCREASED [None]
  - DECREASED APPETITE [None]
  - WEIGHT DECREASED [None]
